FAERS Safety Report 9945209 (Version 1)
Quarter: 2014Q1

REPORT INFORMATION
  Report Type: Report from Study
  Country: US (occurrence: US)
  Receive Date: 20140303
  Receipt Date: 20140303
  Transmission Date: 20141002
  Serious: No
  Sender: FDA-Public Use
  Company Number: US-ABBVIE-13P-163-1050830-00

PATIENT
  Age: 68 Year
  Sex: Female

DRUGS (13)
  1. HUMIRA [Suspect]
     Indication: RHEUMATOID ARTHRITIS
  2. ASPIRIN [Concomitant]
     Indication: ANTICOAGULANT THERAPY
  3. ALPRAZOLAM [Concomitant]
     Indication: INSOMNIA
  4. AMITRIPTYLINE [Concomitant]
     Indication: INSOMNIA
  5. NEXIUM HP [Concomitant]
     Indication: GASTROOESOPHAGEAL REFLUX DISEASE
  6. TRILIPIX [Concomitant]
     Indication: LIPIDS ABNORMAL
  7. CRESTOR [Concomitant]
     Indication: BLOOD CHOLESTEROL ABNORMAL
  8. BENICAR [Concomitant]
     Indication: HYPERTENSION
  9. FOLIC ACID [Concomitant]
     Indication: PRODUCT USED FOR UNKNOWN INDICATION
  10. VITAMIN B [Concomitant]
     Indication: PRODUCT USED FOR UNKNOWN INDICATION
     Dosage: DAILY
  11. MULTIVITAMIN [Concomitant]
     Indication: PRODUCT USED FOR UNKNOWN INDICATION
     Dosage: DAILY
  12. VITAMIN D NOS [Concomitant]
     Indication: PRODUCT USED FOR UNKNOWN INDICATION
  13. ESTRACE [Concomitant]
     Indication: MENOPAUSAL SYMPTOMS

REACTIONS (2)
  - Injection site pain [Recovered/Resolved]
  - Injection site pain [Recovered/Resolved]
